FAERS Safety Report 4829225-8 (Version None)
Quarter: 2005Q4

REPORT INFORMATION
  Report Type: 
  Country: None (occurrence: None)
  Receive Date: 20051116
  Receipt Date: 20051108
  Transmission Date: 20060501
  Serious: Yes (Other)
  Sender: FDA-Public Use
  Company Number: 2005UW16982

PATIENT
  Age: 65 Year
  Sex: Male

DRUGS (4)
  1. SEROQUEL [Suspect]
     Dosage: TITRATED UP
     Route: 048
  2. LAMICTAL [Concomitant]
  3. EFFEXOR [Concomitant]
  4. HALDOL [Concomitant]

REACTIONS (6)
  - FALL [None]
  - INFECTION [None]
  - INJURY [None]
  - LOCALISED INFECTION [None]
  - ORTHOSTATIC HYPOTENSION [None]
  - SKIN LACERATION [None]
